FAERS Safety Report 20685663 (Version 2)
Quarter: 2022Q2

REPORT INFORMATION
  Report Type: Spontaneous
  Country: US (occurrence: US)
  Receive Date: 20220407
  Receipt Date: 20220418
  Transmission Date: 20220721
  Serious: Yes (Hospitalization, Other)
  Sender: FDA-Public Use
  Company Number: US-TEVA-2022-US-2023681

PATIENT
  Age: 43 Year
  Sex: Male

DRUGS (4)
  1. PROPRANOLOL [Suspect]
     Active Substance: PROPRANOLOL HYDROCHLORIDE
     Indication: Thyroiditis
     Route: 065
     Dates: start: 2020
  2. CAMIDANLUMAB TESIRINE [Suspect]
     Active Substance: CAMIDANLUMAB TESIRINE
     Indication: Hodgkin^s disease
     Dosage: 5 CYCLES
     Route: 041
     Dates: end: 2020
  3. METHIMAZOLE [Suspect]
     Active Substance: METHIMAZOLE
     Indication: Thyroiditis
     Route: 065
     Dates: start: 2020, end: 2020
  4. DEXAMETHASONE [Concomitant]
     Active Substance: DEXAMETHASONE
     Indication: Premedication
     Dosage: 8 MILLIGRAM DAILY; PREMEDICATION WITH TRIAL INFUSIONS
     Route: 048
     Dates: start: 2020

REACTIONS (5)
  - Thyroiditis [Recovered/Resolved]
  - Hypothyroidism [Recovering/Resolving]
  - Rash [Unknown]
  - Tubulointerstitial nephritis [Recovering/Resolving]
  - Acute kidney injury [Recovering/Resolving]

NARRATIVE: CASE EVENT DATE: 20200101
